FAERS Safety Report 24770580 (Version 1)
Quarter: 2024Q4

REPORT INFORMATION
  Report Type: Spontaneous
  Country: BD (occurrence: BD)
  Receive Date: 20241224
  Receipt Date: 20241224
  Transmission Date: 20250115
  Serious: Yes (Hospitalization, Other)
  Sender: RANBAXY
  Company Number: BD-SUN PHARMACEUTICAL INDUSTRIES LTD-2024R1-486100

PATIENT
  Age: 35 Year
  Sex: Female

DRUGS (1)
  1. METHOTREXATE [Suspect]
     Active Substance: METHOTREXATE
     Indication: Product used for unknown indication
     Dosage: UNK
     Route: 065

REACTIONS (5)
  - Gastrointestinal haemorrhage [Recovering/Resolving]
  - Mucosal ulceration [Recovering/Resolving]
  - Skin lesion [Recovering/Resolving]
  - Wrong product administered [Recovered/Resolved]
  - Toxicity to various agents [Recovering/Resolving]
